FAERS Safety Report 10227306 (Version 1)
Quarter: 2014Q2

REPORT INFORMATION
  Report Type: Spontaneous
  Country: JP (occurrence: JP)
  Receive Date: 20140610
  Receipt Date: 20140610
  Transmission Date: 20141212
  Serious: Yes (Other)
  Sender: FDA-Public Use
  Company Number: JP-ELI_LILLY_AND_COMPANY-JP201406000031

PATIENT
  Sex: Male

DRUGS (2)
  1. HUMALOG LISPRO - NPL [Suspect]
     Indication: DIABETES MELLITUS
     Dosage: UNK
     Route: 058
  2. NOVOLIN N [Concomitant]
     Indication: DIABETES MELLITUS
     Dosage: 80 IU, QD
     Route: 058

REACTIONS (3)
  - Blindness unilateral [Unknown]
  - Hypoglycaemia [Unknown]
  - Weight increased [Unknown]
